FAERS Safety Report 9783783 (Version 2)
Quarter: 2014Q1

REPORT INFORMATION
  Report Type: Spontaneous
  Country: US (occurrence: US)
  Receive Date: 20131226
  Receipt Date: 20140129
  Transmission Date: 20141002
  Serious: Yes (Other)
  Sender: FDA-Public Use
  Company Number: US-PFIZER INC-2013366720

PATIENT
  Age: 23 Year
  Sex: Female

DRUGS (1)
  1. SULFASALAZINE [Suspect]
     Dosage: UNK

REACTIONS (1)
  - Lung disorder [Recovered/Resolved]
